FAERS Safety Report 4788184-7 (Version None)
Quarter: 2005Q4

REPORT INFORMATION
  Report Type: 
  Country: None (occurrence: None)
  Receive Date: 20051003
  Receipt Date: 20050916
  Transmission Date: 20060501
  Serious: Yes (Death)
  Sender: FDA-Public Use
  Company Number: 2005BL004472

PATIENT
  Sex: Male

DRUGS (12)
  1. CIPROFLOXACIN HYDROCHLORIDE [Suspect]
     Dosage: 250 MILLIGRAMS; TWICE A DAY
  2. SPIRIVA [Suspect]
     Dosage: 18 MICROGRAMS; OROPHARYNGEAL
     Route: 049
     Dates: end: 20050415
  3. COMBIVENT [Suspect]
     Dosage: 2.5 MILLILITERS; DAILY; OROPHARYNGEAL
     Route: 049
     Dates: end: 20050415
  4. SERETIDE (NO PREF.  NAME) [Suspect]
     Dosage: 1 DOSE FORM; TWICE A DAY
  5. SODIUM CHLORIDE 0.9% [Suspect]
  6. PREDNISOLONE SODIUM PHOSPHATE [Suspect]
     Dosage: 5 MILLIGRAMS; EVERY 4 HOURS
  7. AMLODIPINE [Suspect]
     Dosage: 5 MILLIGRAMS; DAILY
  8. TRIMETHOPRIM [Suspect]
     Dosage: 200 MILLIGRAMS; TWICE A DAY
  9. FUROSEMIDE [Suspect]
     Dosage: 40 MILLIGRAMS; DAILY
  10. LIDOCAINE HCL [Suspect]
     Dosage: 11 MILLILITERS; DAILY;
  11. CLOTRIMAZOLE [Suspect]
     Dosage: 2-3 TIMES A DAY; TOPICAL
     Route: 061
  12. DERMALO HYDROBASE (NO PREF. NAME) [Suspect]
     Dosage: AS NEEDED; TOPICAL
     Route: 061

REACTIONS (5)
  - CARDIAC FAILURE [None]
  - CARDIAC FAILURE CONGESTIVE [None]
  - CHRONIC OBSTRUCTIVE PULMONARY DISEASE [None]
  - CYSTITIS [None]
  - DIZZINESS [None]
